FAERS Safety Report 14614839 (Version 1)
Quarter: 2018Q1

REPORT INFORMATION
  Report Type: Spontaneous
  Country: SE (occurrence: SE)
  Receive Date: 20180308
  Receipt Date: 20180308
  Transmission Date: 20180509
  Serious: Yes (Other)
  Sender: FDA-Public Use
  Company Number: SE-PFIZER INC-2018094027

PATIENT
  Age: 23 Year
  Sex: Female

DRUGS (5)
  1. VENLAFAXINE HCL [Suspect]
     Active Substance: VENLAFAXINE HYDROCHLORIDE
     Indication: DEPRESSED MOOD
     Dosage: 375 MG, UNK
     Dates: start: 20180204, end: 20180204
  2. PANODIL [Suspect]
     Active Substance: ACETAMINOPHEN
     Indication: DEPRESSED MOOD
     Dosage: UNK
     Dates: start: 20180204, end: 20180204
  3. PRONAXEN [Suspect]
     Active Substance: NAPROXEN
     Indication: DEPRESSED MOOD
     Dosage: UNK
     Dates: start: 20180204, end: 20180204
  4. PANOCOD [Suspect]
     Active Substance: ACETAMINOPHEN\CODEINE PHOSPHATE
     Indication: DEPRESSED MOOD
     Dosage: 7 DF, UNK
     Dates: start: 20180204, end: 20180204
  5. LERGIGAN /00033002/ [Suspect]
     Active Substance: PROMETHAZINE HYDROCHLORIDE
     Indication: DEPRESSED MOOD
     Dosage: 250 MG, UNK
     Dates: start: 20180204, end: 20180204

REACTIONS (3)
  - Toxicity to various agents [Unknown]
  - Abdominal pain upper [Unknown]
  - Intentional self-injury [Unknown]

NARRATIVE: CASE EVENT DATE: 20180204
